FAERS Safety Report 8358202-8 (Version None)
Quarter: 2012Q2

REPORT INFORMATION
  Report Type: 
  Country: None (occurrence: None)
  Receive Date: 20120514
  Receipt Date: 20120504
  Transmission Date: 20120825
  Serious: Yes (Congenital Anomaly)
  Sender: FDA-Public Use
  Company Number: US-GLAXOSMITHKLINE-A0977200A

PATIENT
  Sex: Female

DRUGS (2)
  1. ZOLOFT [Concomitant]
     Dates: start: 20071101
  2. PAXIL [Suspect]
     Indication: PRODUCT USED FOR UNKNOWN INDICATION
     Route: 064
     Dates: end: 20061101

REACTIONS (6)
  - TORTICOLLIS [None]
  - GROWTH HORMONE DEFICIENCY [None]
  - BLINDNESS [None]
  - CLEFT PALATE [None]
  - FOETAL EXPOSURE DURING PREGNANCY [None]
  - SEPTO-OPTIC DYSPLASIA [None]
